FAERS Safety Report 5829953-1 (Version None)
Quarter: 2008Q3

REPORT INFORMATION
  Report Type: 
  Country: None (occurrence: None)
  Receive Date: 20080731
  Receipt Date: 20080731
  Transmission Date: 20090109
  Serious: Yes (Other)
  Sender: FDA-Public Use
  Company Number: None

PATIENT
  Sex: Female

DRUGS (1)
  1. LEVOXYL [Suspect]

REACTIONS (3)
  - FEELING ABNORMAL [None]
  - FRUSTRATION [None]
  - HYPOAESTHESIA ORAL [None]
